FAERS Safety Report 11106568 (Version 1)
Quarter: 2015Q2

REPORT INFORMATION
  Report Type: Spontaneous
  Country: US (occurrence: None)
  Receive Date: 20150511
  Receipt Date: 20150511
  Transmission Date: 20150821
  Serious: Yes (Disabling)
  Sender: FDA-Public Use
  Company Number: None

PATIENT
  Age: 61 Year
  Sex: Female
  Weight: 61.24 kg

DRUGS (3)
  1. MULTIVITAMIN CALCIUM D-3 [Concomitant]
  2. LINZESS [Suspect]
     Active Substance: LINACLOTIDE
     Indication: IRRITABLE BOWEL SYNDROME
     Route: 048
     Dates: start: 20150418, end: 20150430
  3. THYROID EFFEXOR OXYBUTNIN ATENOLOL EVISTA [Concomitant]

REACTIONS (2)
  - Lethargy [None]
  - Hypersomnia [None]

NARRATIVE: CASE EVENT DATE: 20150417
